FAERS Safety Report 6543418-3 (Version None)
Quarter: 2010Q1

REPORT INFORMATION
  Report Type: 
  Country: None (occurrence: None)
  Receive Date: 20100120
  Receipt Date: 20090730
  Transmission Date: 20100710
  Serious: No
  Sender: FDA-Public Use
  Company Number: US-KINGPHARMUSA00001-K200900920

PATIENT
  Sex: Female
  Weight: 58.957 kg

DRUGS (4)
  1. INTAL [Suspect]
     Dosage: UNK, QID
     Dates: start: 20081201
  2. PLAVIX [Concomitant]
     Indication: CARDIAC DISORDER
     Dosage: UNK
  3. PROCARDIA [Concomitant]
     Indication: CARDIAC DISORDER
     Dosage: UNK
  4. TOPROL-XL [Concomitant]
     Indication: CARDIAC DISORDER
     Dosage: UNK

REACTIONS (2)
  - COUGH [None]
  - INSOMNIA [None]
